FAERS Safety Report 5062845-7 (Version None)
Quarter: 2006Q3

REPORT INFORMATION
  Report Type: 
  Country: None (occurrence: None)
  Receive Date: 20060724
  Receipt Date: 20060707
  Transmission Date: 20061208
  Serious: Yes (Death, Life-Threatening)
  Sender: FDA-Public Use
  Company Number: AND_0370_2006

PATIENT
  Age: 70 Year
  Sex: Male

DRUGS (8)
  1. METFORMIN [Suspect]
     Indication: DIABETES MELLITUS NON-INSULIN-DEPENDENT
     Dosage: DF UNK PO
     Route: 048
     Dates: end: 20060416
  2. LISINOPRIL [Suspect]
     Indication: HYPERTENSION
     Dosage: DF
     Dates: end: 20060416
  3. ALLOPURINOL [Concomitant]
  4. ASPIRIN [Concomitant]
  5. ATORVASTATIN CALCIUM [Concomitant]
  6. BISOPROLOL FUMARATE [Concomitant]
  7. DOXAZOSIN [Concomitant]
  8. SILDENAFIL [Concomitant]

REACTIONS (4)
  - ALCOHOLIC [None]
  - HAEMODIALYSIS [None]
  - LACTIC ACIDOSIS [None]
  - RENAL FAILURE [None]
